FAERS Safety Report 8028489-X (Version None)
Quarter: 2012Q1

REPORT INFORMATION
  Report Type: 
  Country: None (occurrence: None)
  Receive Date: 20120106
  Receipt Date: 20110524
  Transmission Date: 20120608
  Serious: No
  Sender: FDA-Public Use
  Company Number: US-MYLANLABS-2011S1010616

PATIENT
  Age: 67 Year
  Sex: Female
  Weight: 74.84 kg

DRUGS (4)
  1. CETIRIZINE HYDROCHLORIDE [Suspect]
     Indication: MULTIPLE ALLERGIES
     Route: 048
     Dates: end: 20110519
  2. SYNTHROID [Concomitant]
     Indication: HYPOTHYROIDISM
  3. AMLODIPINE [Concomitant]
     Indication: BLOOD PRESSURE INCREASED
  4. CRESTOR [Concomitant]
     Indication: BLOOD CHOLESTEROL INCREASED

REACTIONS (1)
  - DRUG INEFFECTIVE [None]
